FAERS Safety Report 5456349-7 (Version None)
Quarter: 2007Q3

REPORT INFORMATION
  Report Type: 
  Country: None (occurrence: None)
  Receive Date: 20070917
  Receipt Date: 20070917
  Transmission Date: 20080115
  Serious: Yes (Hospitalization)
  Sender: FDA-Public Use
  Company Number: None

PATIENT
  Sex: Female
  Weight: 76.6 kg

DRUGS (1)
  1. PARAGARD T 380A [Suspect]

REACTIONS (2)
  - PELVIC INFLAMMATORY DISEASE [None]
  - TUBO-OVARIAN ABSCESS [None]
